FAERS Safety Report 4798340-X (Version None)
Quarter: 2005Q4

REPORT INFORMATION
  Report Type: 
  Country: None (occurrence: None)
  Receive Date: 20051014
  Receipt Date: 20051003
  Transmission Date: 20060501
  Serious: Yes (Hospitalization)
  Sender: FDA-Public Use
  Company Number: FR-BRISTOL-MYERS SQUIBB COMPANY-13137559

PATIENT
  Age: 82 Year
  Sex: Male

DRUGS (8)
  1. VASTEN TABS 20 MG [Suspect]
     Route: 048
  2. PREVISCAN [Interacting]
     Route: 048
  3. LASILIX [Concomitant]
     Route: 048
  4. IMOVANE [Concomitant]
     Route: 048
  5. ALDACTONE [Concomitant]
     Route: 048
  6. MOPRAL [Concomitant]
     Route: 048
  7. SOTALOL HCL [Concomitant]
     Route: 048
  8. PROZAC [Concomitant]

REACTIONS (2)
  - DRUG INTERACTION [None]
  - EPISTAXIS [None]
